FAERS Safety Report 8621303-0 (Version None)
Quarter: 2012Q3

REPORT INFORMATION
  Report Type: 
  Country: None (occurrence: None)
  Receive Date: 20120824
  Receipt Date: 20120822
  Transmission Date: 20120928
  Serious: Yes (Death)
  Sender: FDA-Public Use
  Company Number: US-ABBOTT-12P-163-0972567-00

PATIENT

DRUGS (2)
  1. LAMOTRIGINE [Interacting]
     Indication: PRODUCT USED FOR UNKNOWN INDICATION
  2. VALPROIC ACID [Suspect]
     Indication: PRODUCT USED FOR UNKNOWN INDICATION

REACTIONS (2)
  - DRUG LEVEL INCREASED [None]
  - DRUG INTERACTION [None]
